FAERS Safety Report 10007408 (Version 4)
Quarter: 2014Q2

REPORT INFORMATION
  Report Type: Spontaneous
  Country: JP (occurrence: JP)
  Receive Date: 20140313
  Receipt Date: 20140422
  Transmission Date: 20141212
  Serious: Yes (Hospitalization)
  Sender: FDA-Public Use
  Company Number: JP-GLAXOSMITHKLINE-B0975689A

PATIENT
  Age: 11 Year
  Sex: Male
  Weight: 30 kg

DRUGS (9)
  1. RELENZA [Suspect]
     Indication: INFLUENZA
     Route: 055
     Dates: start: 20140227, end: 20140303
  2. MEIACT [Concomitant]
     Route: 048
     Dates: start: 20140226
  3. MUCOSAL [Concomitant]
     Route: 048
     Dates: start: 20140226
  4. CALONAL [Concomitant]
     Route: 065
     Dates: start: 20140226
  5. ASVERIN [Concomitant]
     Route: 048
     Dates: start: 20140301
  6. CLARITH [Concomitant]
     Route: 048
     Dates: start: 20140301
  7. ANTIHISTAMINES [Concomitant]
     Route: 065
  8. ADRENOCORTICAL HORMONE PREPARATIONS [Concomitant]
     Route: 045
  9. CELESTAMINE [Concomitant]
     Route: 048

REACTIONS (27)
  - Stevens-Johnson syndrome [Recovering/Resolving]
  - Stomatitis necrotising [Unknown]
  - Bronchopneumonia [Recovering/Resolving]
  - Erythema multiforme [Unknown]
  - Oral mucosal blistering [Recovering/Resolving]
  - Swelling face [Recovering/Resolving]
  - Pyrexia [Recovering/Resolving]
  - Cough [Recovering/Resolving]
  - Oropharyngeal pain [Recovering/Resolving]
  - Vomiting [Recovering/Resolving]
  - Erythema [Recovering/Resolving]
  - Lip swelling [Recovering/Resolving]
  - Cheilitis [Recovering/Resolving]
  - Lip haemorrhage [Recovering/Resolving]
  - Oral mucosa erosion [Recovering/Resolving]
  - Mouth haemorrhage [Recovering/Resolving]
  - Tongue blistering [Recovering/Resolving]
  - Penile ulceration [Recovering/Resolving]
  - Hypophagia [Recovering/Resolving]
  - Enteral nutrition [Recovering/Resolving]
  - Lip erosion [Not Recovered/Not Resolved]
  - Dermatitis [Unknown]
  - Blister [Recovering/Resolving]
  - Mucous membrane disorder [Recovering/Resolving]
  - Tongue coated [Unknown]
  - Scab [Unknown]
  - Skin degenerative disorder [Unknown]
